FAERS Safety Report 8021871-6 (Version None)
Quarter: 2011Q4

REPORT INFORMATION
  Report Type: 
  Country: None (occurrence: None)
  Receive Date: 20111230
  Receipt Date: 20111220
  Transmission Date: 20120403
  Serious: Yes (Hospitalization)
  Sender: FDA-Public Use
  Company Number: DSU-2011-09501

PATIENT
  Age: 76 Year
  Sex: Female
  Weight: 63.05 kg

DRUGS (3)
  1. BENICAR [Suspect]
     Indication: HYPERTENSION
     Dosage: 40 MG (40 MG, QD), PER ORAL; 20 MG (20 MG, 1/2 (40MG) TABLET QD), PER ORAL
     Route: 048
     Dates: start: 20060101, end: 20090901
  2. BENICAR [Suspect]
     Indication: HYPERTENSION
     Dosage: 40 MG (40 MG, QD), PER ORAL; 20 MG (20 MG, 1/2 (40MG) TABLET QD), PER ORAL
     Route: 048
     Dates: start: 20090901
  3. LIPITOR [Suspect]
     Indication: HYPERLIPIDAEMIA
     Dosage: , PER ORAL
     Route: 048
     Dates: end: 20090901

REACTIONS (7)
  - UNRESPONSIVE TO STIMULI [None]
  - WRONG TECHNIQUE IN DRUG USAGE PROCESS [None]
  - RHABDOMYOLYSIS [None]
  - GASTROOESOPHAGEAL REFLUX DISEASE [None]
  - KIDNEY INFECTION [None]
  - INFLUENZA [None]
  - HELICOBACTER INFECTION [None]
